FAERS Safety Report 24419568 (Version 2)
Quarter: 2024Q4

REPORT INFORMATION
  Report Type: Spontaneous
  Country: US (occurrence: US)
  Receive Date: 20241010
  Receipt Date: 20241110
  Transmission Date: 20250114
  Serious: No
  Sender: SANOFI AVENTIS
  Company Number: US-SA-2024SA289136

PATIENT
  Sex: Female

DRUGS (1)
  1. DUPIXENT [Suspect]
     Active Substance: DUPILUMAB
     Indication: Nasal polyps
     Dosage: 300 MG QOW
     Route: 058

REACTIONS (4)
  - Cough [Unknown]
  - Oropharyngeal discomfort [Not Recovered/Not Resolved]
  - Injection site pain [Unknown]
  - Inappropriate schedule of product administration [Unknown]
